FAERS Safety Report 8860668 (Version 3)
Quarter: 2012Q4

REPORT INFORMATION
  Report Type: 
  Country: US (occurrence: US)
  Receive Date: 20121025
  Receipt Date: 20121218
  Transmission Date: 20130627
  Serious: No
  Sender: FDA-Public Use
  Company Number: US-ASTRAZENECA-2012SE78682

PATIENT
  Age: 70 Year
  Sex: Female

DRUGS (3)
  1. NEXIUM [Suspect]
     Route: 048
  2. SYMBICORT PMDI [Suspect]
     Dosage: 160/4.5 MCG,UNKNOWN
     Route: 055
  3. PRILOSEC [Suspect]
     Route: 048

REACTIONS (8)
  - Malaise [Recovering/Resolving]
  - Limb discomfort [Unknown]
  - Musculoskeletal discomfort [Unknown]
  - Herpes zoster [Recovering/Resolving]
  - Back pain [Unknown]
  - Gastric polyps [Unknown]
  - Constipation [Unknown]
  - Abdominal pain upper [Unknown]
